FAERS Safety Report 13585339 (Version 2)
Quarter: 2017Q2

REPORT INFORMATION
  Report Type: Spontaneous
  Country: US (occurrence: US)
  Receive Date: 20170526
  Receipt Date: 20170614
  Transmission Date: 20170830
  Serious: Yes (Hospitalization, Other)
  Sender: FDA-Public Use
  Company Number: US-009507513-1705USA009445

PATIENT
  Age: 29 Year
  Sex: Female

DRUGS (2)
  1. PREGNYL [Suspect]
     Active Substance: CHORIOGONADOTROPIN ALFA
     Indication: OVULATION INDUCTION
     Dosage: 1 CYCLE
  2. LEUPROLIDE [Suspect]
     Active Substance: LEUPROLIDE
     Indication: OVULATION INDUCTION
     Dosage: 1 CYCLE

REACTIONS (3)
  - Metastases to lymph nodes [Unknown]
  - Intraductal proliferative breast lesion [Unknown]
  - Ovarian hyperstimulation syndrome [Unknown]
